FAERS Safety Report 4301096-8 (Version None)
Quarter: 2004Q1

REPORT INFORMATION
  Report Type: 
  Country: None (occurrence: None)
  Receive Date: 20040219
  Receipt Date: 20031104
  Transmission Date: 20041129
  Serious: Yes (Hospitalization, Other)
  Sender: FDA-Public Use
  Company Number: KII-2003-0007119

PATIENT
  Age: 51 Year
  Sex: Male

DRUGS (10)
  1. MORPHINE [Suspect]
     Indication: PAIN
  2. ACE INHIBITOR NOS [Suspect]
     Indication: DRUG USE FOR UNKNOWN INDICATION
  3. ALPHA BLOCKER (ALPHA-I-ANTITRYPSIN) [Suspect]
     Indication: DRUG USE FOR UNKNOWN INDICATION
  4. SERUMLIPIDREDUCING AGENTS [Suspect]
     Indication: DRUG USE FOR UNKNOWN INDICATION
  5. BETA BLOCKING AGENTS [Suspect]
     Indication: DRUG USE FOR UNKNOWN INDICATION
  6. CIMETIDINE [Suspect]
     Indication: DRUG USE FOR UNKNOWN INDICATION
  7. NITRATE() [Suspect]
     Indication: DRUG USE FOR UNKNOWN INDICATION
  8. SSRI() [Suspect]
     Indication: DRUG USE FOR UNKNOWN INDICATION
  9. TRAZODONE HCL [Suspect]
     Indication: DRUG USE FOR UNKNOWN INDICATION
  10. WARFARIN SODIUM [Suspect]
     Indication: DRUG USE FOR UNKNOWN INDICATION

REACTIONS (28)
  - ACTIVATED PARTIAL THROMBOPLASTIN TIME PROLONGED [None]
  - ATRIOVENTRICULAR BLOCK FIRST DEGREE [None]
  - BLOOD BICARBONATE DECREASED [None]
  - BLOOD MAGNESIUM INCREASED [None]
  - BLOOD PH INCREASED [None]
  - BLOOD POTASSIUM INCREASED [None]
  - BLOOD PRESSURE INCREASED [None]
  - BODY TEMPERATURE DECREASED [None]
  - BODY TEMPERATURE INCREASED [None]
  - BUNDLE BRANCH BLOCK RIGHT [None]
  - CONFUSIONAL STATE [None]
  - DEPRESSED LEVEL OF CONSCIOUSNESS [None]
  - DIALYSIS [None]
  - ELECTROCARDIOGRAM QRS COMPLEX PROLONGED [None]
  - ELECTROCARDIOGRAM QT CORRECTED INTERVAL PROLONGED [None]
  - HEART RATE DECREASED [None]
  - HYPOTENSION [None]
  - INTERNATIONAL NORMALISED RATIO INCREASED [None]
  - LETHARGY [None]
  - MENTAL STATUS CHANGES [None]
  - MYDRIASIS [None]
  - MYOGLOBIN BLOOD INCREASED [None]
  - OXYGEN SATURATION DECREASED [None]
  - PROTHROMBIN TIME PROLONGED [None]
  - PUPILLARY REFLEX IMPAIRED [None]
  - RENAL FAILURE ACUTE [None]
  - TROPONIN INCREASED [None]
  - WHITE BLOOD CELL COUNT INCREASED [None]
